FAERS Safety Report 23781891 (Version 3)
Quarter: 2024Q2

REPORT INFORMATION
  Report Type: Report from Study
  Country: CO (occurrence: CO)
  Receive Date: 20240425
  Receipt Date: 20240607
  Transmission Date: 20240716
  Serious: Yes (Hospitalization, Other)
  Sender: FDA-Public Use
  Company Number: CO-ABBVIE-5732975

PATIENT
  Sex: Male
  Weight: 70 kg

DRUGS (3)
  1. SKYRIZI [Suspect]
     Active Substance: RISANKIZUMAB-RZAA
     Indication: Psoriasis
     Dosage: FORM STRENGTH: 150 MILLIGRAM?ADDITIONAL COMMENTS: THE PATIENT DIDN^T APPLIED IT AT HOME
     Route: 058
     Dates: start: 20230330, end: 20240126
  2. ROSUVASTATIN [Concomitant]
     Active Substance: ROSUVASTATIN
     Indication: Product used for unknown indication
     Dosage: FREQUENCY TEXT: EVERY NIGHT
     Route: 048
  3. LEVOTHYROXINE [Concomitant]
     Active Substance: LEVOTHYROXINE\LEVOTHYROXINE SODIUM
     Indication: Thyroid disorder

REACTIONS (20)
  - Tuberculosis [Unknown]
  - Renal disorder [Unknown]
  - Platelet count abnormal [Not Recovered/Not Resolved]
  - Gastrointestinal disorder [Unknown]
  - Depression [Unknown]
  - Infection [Unknown]
  - Inguinal hernia [Not Recovered/Not Resolved]
  - Wound [Not Recovered/Not Resolved]
  - Dysuria [Recovering/Resolving]
  - Abdominal pain [Unknown]
  - Urinary retention [Unknown]
  - Anxiety [Unknown]
  - Nausea [Unknown]
  - Dermatitis allergic [Recovered/Resolved]
  - Hyperhidrosis [Unknown]
  - Dry skin [Recovering/Resolving]
  - Renal impairment [Unknown]
  - Psoriasis [Recovering/Resolving]
  - Gait disturbance [Not Recovered/Not Resolved]
  - Skin exfoliation [Recovering/Resolving]

NARRATIVE: CASE EVENT DATE: 20240101
